FAERS Safety Report 24190056 (Version 1)
Quarter: 2024Q3

REPORT INFORMATION
  Report Type: Spontaneous
  Country: US (occurrence: None)
  Receive Date: 20240808
  Receipt Date: 20240808
  Transmission Date: 20241016
  Serious: Yes (Hospitalization)
  Sender: Public
  Company Number: None

PATIENT
  Age: 77 Year
  Sex: Male
  Weight: 65.9 kg

DRUGS (4)
  1. FLUOROURACIL [Suspect]
     Active Substance: FLUOROURACIL
     Dates: start: 20240327, end: 20240804
  2. Capecitabine 93000 mg (Xeloda) [Concomitant]
  3. Leucovorin calcium 720mg [Concomitant]
  4. OXALIplatin  (Eloxatin) 155 mg [Concomitant]

REACTIONS (6)
  - Suicidal ideation [None]
  - Hypophagia [None]
  - Gait inability [None]
  - Confusional state [None]
  - Food refusal [None]
  - Violence-related symptom [None]

NARRATIVE: CASE EVENT DATE: 20240805
